FAERS Safety Report 8266619-5 (Version None)
Quarter: 2012Q2

REPORT INFORMATION
  Report Type: 
  Country: None (occurrence: None)
  Receive Date: 20120406
  Receipt Date: 20120322
  Transmission Date: 20120825
  Serious: Yes (Other)
  Sender: FDA-Public Use
  Company Number: US-BAXTER-2012BAX000546

PATIENT
  Age: 69 Year
  Sex: Male

DRUGS (2)
  1. FUROSEMIDE [Concomitant]
     Route: 042
  2. DOBUTAMINE  HYDROCHLORIDE IN 5% DEXTROSE INJECTION [Suspect]
     Route: 042

REACTIONS (2)
  - TRICUSPID VALVE INCOMPETENCE [None]
  - CONDITION AGGRAVATED [None]
